FAERS Safety Report 21004807 (Version 11)
Quarter: 2024Q1

REPORT INFORMATION
  Report Type: Report from Study
  Country: GB (occurrence: GB)
  Receive Date: 20220624
  Receipt Date: 20240124
  Transmission Date: 20240409
  Serious: Yes (Disabling)
  Sender: FDA-Public Use
  Company Number: GB-NOVARTISPH-NVSC2022GB093173

PATIENT
  Age: 51 Year
  Sex: Female

DRUGS (11)
  1. COSENTYX [Suspect]
     Active Substance: SECUKINUMAB
     Indication: Ankylosing spondylitis
     Dosage: 150 MG, QMO
     Route: 058
     Dates: start: 20210310
  2. COSENTYX [Suspect]
     Active Substance: SECUKINUMAB
     Dosage: 150 MG, QMO
     Route: 065
     Dates: start: 202202
  3. COSENTYX [Suspect]
     Active Substance: SECUKINUMAB
     Dosage: 150 MG, QMO
     Route: 065
     Dates: start: 202203
  4. COSENTYX [Suspect]
     Active Substance: SECUKINUMAB
     Dosage: 150 MG, QMO
     Route: 065
  5. COSENTYX [Suspect]
     Active Substance: SECUKINUMAB
     Dosage: 150 MG, QMO
     Route: 065
  6. COSENTYX [Suspect]
     Active Substance: SECUKINUMAB
     Dosage: UNK
     Route: 065
  7. THYROXINE [Concomitant]
     Active Substance: LEVOTHYROXINE
     Indication: Product used for unknown indication
     Dosage: 20 MG
     Route: 065
  8. LIOTHYRONINE [Concomitant]
     Active Substance: LIOTHYRONINE
     Indication: Product used for unknown indication
     Dosage: UNK
     Route: 065
  9. AMLODIPINE [Concomitant]
     Active Substance: AMLODIPINE BESYLATE
     Indication: Product used for unknown indication
     Dosage: UNK
     Route: 065
  10. LANSOPRAZOLE [Concomitant]
     Active Substance: LANSOPRAZOLE
     Indication: Product used for unknown indication
     Dosage: UNK
     Route: 065
  11. NAPROXEN [Concomitant]
     Active Substance: NAPROXEN
     Indication: Product used for unknown indication
     Dosage: UNK
     Route: 065

REACTIONS (30)
  - Dermatitis contact [Not Recovered/Not Resolved]
  - Decreased immune responsiveness [Not Recovered/Not Resolved]
  - Pain of skin [Not Recovered/Not Resolved]
  - Erythema [Not Recovered/Not Resolved]
  - Skin fissures [Not Recovered/Not Resolved]
  - Psoriasis [Recovered/Resolved]
  - Erythema [Recovered/Resolved]
  - Skin induration [Not Recovered/Not Resolved]
  - Scab [Not Recovered/Not Resolved]
  - Lip dry [Recovered/Resolved]
  - Lip pain [Recovered/Resolved]
  - Pustular psoriasis [Not Recovered/Not Resolved]
  - Pain in extremity [Recovered/Resolved]
  - Dry skin [Recovering/Resolving]
  - Skin irritation [Recovered/Resolved]
  - Nasal crusting [Not Recovered/Not Resolved]
  - Nasal injury [Not Recovered/Not Resolved]
  - Skin weeping [Not Recovered/Not Resolved]
  - Swelling [Unknown]
  - Head injury [Unknown]
  - Dermatitis [Unknown]
  - COVID-19 [Unknown]
  - Nasal congestion [Unknown]
  - Rhinalgia [Unknown]
  - Rhinorrhoea [Unknown]
  - Epistaxis [Unknown]
  - Eye contusion [Recovering/Resolving]
  - Musculoskeletal chest pain [Recovering/Resolving]
  - Contusion [Recovering/Resolving]
  - Fall [Recovering/Resolving]

NARRATIVE: CASE EVENT DATE: 20220101
